FAERS Safety Report 7402041-9 (Version None)
Quarter: 2011Q2

REPORT INFORMATION
  Report Type: 
  Country: None (occurrence: None)
  Receive Date: 20110408
  Receipt Date: 20110405
  Transmission Date: 20111010
  Serious: Yes (Life-Threatening, Hospitalization)
  Sender: FDA-Public Use
  Company Number: DE-PFIZER INC-DE-WYE-G05562710

PATIENT
  Age: 83 Year
  Sex: Female
  Weight: 96 kg

DRUGS (11)
  1. TAZOBAC EF [Suspect]
     Dosage: 4.5 G, 1X/DAY
     Route: 042
     Dates: start: 20090803, end: 20090803
  2. PANTOZOL [Suspect]
     Dosage: SINGLE DOSE 20 OR 40 MG, PRECISE DOSE REGIMEN UNKNOWN
     Route: 048
     Dates: start: 20090726, end: 20090815
  3. HALDOL [Suspect]
     Dosage: 0.5 MG, 2X/DAY
     Route: 048
     Dates: start: 20090808, end: 20090813
  4. CITALOPRAM [Suspect]
     Dosage: 20 MG, 1X/DAY
     Route: 048
     Dates: start: 20090717, end: 20090816
  5. TAZOBAC EF [Suspect]
     Dosage: 4.5 G, 3X/DAY
     Route: 042
     Dates: start: 20090804, end: 20090809
  6. CEFTRIAXONE SODIUM [Suspect]
     Dosage: 4000 MG, 1X/DAY
     Route: 030
     Dates: start: 20090803, end: 20090809
  7. UNACID [Suspect]
     Dosage: 750 MG, 1X/DAY
     Route: 048
     Dates: start: 20090728, end: 20090728
  8. METAMIZOLE [Suspect]
     Dosage: UNK
     Route: 048
     Dates: start: 20090618, end: 20090721
  9. UNACID [Suspect]
     Dosage: 750 MG, 2X/DAY
     Route: 048
     Dates: start: 20090729, end: 20090804
  10. METAMIZOLE [Suspect]
     Dosage: DIFFERENT SINGLE DOSES WITH BREAKS (NOT  FURTHER SPECIFIED)
     Route: 048
     Dates: start: 20090508, end: 20090616
  11. METAMIZOLE [Suspect]
     Dosage: UNK
     Route: 048
     Dates: start: 20090803, end: 20090815

REACTIONS (2)
  - PANCYTOPENIA [None]
  - WOUND INFECTION [None]
